FAERS Safety Report 5693757-3 (Version None)
Quarter: 2008Q2

REPORT INFORMATION
  Report Type: 
  Country: None (occurrence: None)
  Receive Date: 20080403
  Receipt Date: 20080402
  Transmission Date: 20081010
  Serious: Yes (Other)
  Sender: FDA-Public Use
  Company Number: DE-JNJFOC-20080205860

PATIENT
  Sex: Male

DRUGS (1)
  1. HALDOL [Suspect]
     Indication: HICCUPS
     Dosage: DURING 6 DAYS

REACTIONS (1)
  - HYPOKINESIA [None]
